FAERS Safety Report 7571630-3 (Version None)
Quarter: 2011Q2

REPORT INFORMATION
  Report Type: 
  Country: None (occurrence: None)
  Receive Date: 20110624
  Receipt Date: 20110621
  Transmission Date: 20111010
  Serious: Yes (Hospitalization, Disabling)
  Sender: FDA-Public Use
  Company Number: US-MERCK-1007USA03396

PATIENT
  Age: 59 Year
  Sex: Female
  Weight: 57 kg

DRUGS (2)
  1. FOSAMAX [Suspect]
     Indication: OSTEOPOROSIS
     Route: 048
     Dates: start: 19970101, end: 20091008
  2. FOSAMAX [Suspect]
     Route: 048
     Dates: start: 20000920, end: 20010611

REACTIONS (13)
  - CONTUSION [None]
  - MUSCULAR WEAKNESS [None]
  - WRIST FRACTURE [None]
  - FALL [None]
  - BACK DISORDER [None]
  - OSTEOPENIA [None]
  - HAEMORRHAGIC ANAEMIA [None]
  - PAIN IN EXTREMITY [None]
  - VITAMIN D DEFICIENCY [None]
  - MUSCLE STRAIN [None]
  - FEMUR FRACTURE [None]
  - JOINT SPRAIN [None]
  - SPINAL OSTEOARTHRITIS [None]
